FAERS Safety Report 9688902 (Version 1)
Quarter: 2013Q4

REPORT INFORMATION
  Report Type: Report from Study
  Country: US (occurrence: US)
  Receive Date: 20131114
  Receipt Date: 20131114
  Transmission Date: 20140711
  Serious: Yes (Other)
  Sender: FDA-Public Use
  Company Number: US-ROCHE-1301490

PATIENT
  Sex: 0

DRUGS (3)
  1. PEG-INTERFERON ALFA 2A [Suspect]
     Indication: HEPATITIS C VIRUS TEST POSITIVE
     Dosage: PER WEEK
     Route: 058
  2. RIBAVIRIN [Suspect]
     Indication: HEPATITIS C VIRUS TEST POSITIVE
     Dosage: DOSED ACCORDING TO BODY WEIGHT ({75 KG, 1000 MG DAILY; }=75 KG, 1200 MG DAILY) THROUGH 4 WEEKS OF TR
     Route: 048
  3. GSK2336805 (GSK2336805) [Suspect]
     Indication: HEPATITIS C VIRUS TEST POSITIVE
     Route: 065

REACTIONS (12)
  - Lymphopenia [Recovered/Resolved]
  - Neutropenia [Recovered/Resolved]
  - Lung disorder [Recovered/Resolved]
  - Anaemia [Unknown]
  - Leukopenia [Unknown]
  - Thrombocytopenia [Unknown]
  - Nausea [Unknown]
  - Vomiting [Recovered/Resolved]
  - Chills [Unknown]
  - Fatigue [Unknown]
  - Folliculitis [Unknown]
  - Cough [Unknown]
